FAERS Safety Report 11614480 (Version 1)
Quarter: 2015Q4

REPORT INFORMATION
  Report Type: Spontaneous
  Country: GB (occurrence: GB)
  Receive Date: 20151009
  Receipt Date: 20151009
  Transmission Date: 20160304
  Serious: Yes (Other)
  Sender: FDA-Public Use
  Company Number: GB-AUROBINDO-AUR-APL-2015-08943

PATIENT
  Age: 76 Year
  Sex: Male
  Weight: 50 kg

DRUGS (1)
  1. TAMSULOSIN 400?G [Suspect]
     Active Substance: TAMSULOSIN
     Indication: PROSTATIC OPERATION
     Dosage: 400 ?G, UNK
     Route: 048
     Dates: start: 2015

REACTIONS (2)
  - Fall [Recovered/Resolved]
  - Syncope [Recovered/Resolved]

NARRATIVE: CASE EVENT DATE: 201502
